FAERS Safety Report 10746462 (Version 1)
Quarter: 2015Q1

REPORT INFORMATION
  Report Type: Report from Study
  Country: BR (occurrence: BR)
  Receive Date: 20150128
  Receipt Date: 20150128
  Transmission Date: 20150721
  Serious: Yes (Death)
  Sender: FDA-Public Use
  Company Number: PHHY2015BR009718

PATIENT
  Sex: Female
  Weight: 49 kg

DRUGS (1)
  1. DIOVAN AMLO FIX [Suspect]
     Active Substance: AMLODIPINE\VALSARTAN
     Indication: HYPERTENSION
     Dosage: 1 DF, QD
     Route: 065

REACTIONS (5)
  - Limb discomfort [Unknown]
  - Impaired healing [Unknown]
  - Venous occlusion [Unknown]
  - Wound [Unknown]
  - Death [Fatal]

NARRATIVE: CASE EVENT DATE: 2014
